FAERS Safety Report 10933674 (Version 3)
Quarter: 2015Q2

REPORT INFORMATION
  Report Type: Report from Study
  Country: CA (occurrence: CA)
  Receive Date: 20150320
  Receipt Date: 20150427
  Transmission Date: 20150821
  Serious: Yes (Hospitalization, Other)
  Sender: FDA-Public Use
  Company Number: CA-ROCHE-1391687

PATIENT
  Age: 64 Year
  Sex: Male

DRUGS (18)
  1. RITUXAN [Suspect]
     Active Substance: RITUXIMAB
     Indication: RHEUMATOID ARTHRITIS
     Dosage: FREQUENCY:  DAY 1 AND DAY 15
     Route: 042
     Dates: start: 20140415
  2. APO-METOPROLOL [Concomitant]
  3. APO-OMEPRAZOLE [Concomitant]
     Active Substance: OMEPRAZOLE
  4. MISOPROSTOL. [Concomitant]
     Active Substance: MISOPROSTOL
  5. PENTASA [Concomitant]
     Active Substance: MESALAMINE
  6. ALENDRONATE [Concomitant]
     Active Substance: ALENDRONATE SODIUM
  7. ATORVASTATIN [Concomitant]
     Active Substance: ATORVASTATIN
  8. ACETAMINOPHEN. [Concomitant]
     Active Substance: ACETAMINOPHEN
     Indication: PREMEDICATION
     Route: 048
     Dates: start: 20140415
  9. METFORMIN [Concomitant]
     Active Substance: METFORMIN HYDROCHLORIDE
  10. PREDNISONE. [Concomitant]
     Active Substance: PREDNISONE
  11. CANDESARTAN [Concomitant]
     Active Substance: CANDESARTAN
  12. TYLOSIN [Concomitant]
     Active Substance: TYLOSIN
  13. NOVASEN [Concomitant]
  14. TYLENOL WITH CODEINE [Concomitant]
     Active Substance: ACETAMINOPHEN\CODEINE PHOSPHATE
  15. APO-FUROSEMIDE [Concomitant]
  16. METHYLPREDNISOLONE. [Concomitant]
     Active Substance: METHYLPREDNISOLONE
     Indication: PREMEDICATION
     Route: 042
     Dates: start: 20140415
  17. SPIRIVA [Concomitant]
     Active Substance: TIOTROPIUM BROMIDE MONOHYDRATE
  18. SUCRALFATE. [Concomitant]
     Active Substance: SUCRALFATE

REACTIONS (7)
  - Wound infection [Unknown]
  - Cardiac failure congestive [Recovered/Resolved]
  - Blood potassium increased [Recovered/Resolved]
  - Rheumatoid arthritis [Unknown]
  - Aortic aneurysm [Unknown]
  - Heart rate decreased [Unknown]
  - Blood pressure fluctuation [Unknown]

NARRATIVE: CASE EVENT DATE: 20140925
